FAERS Safety Report 7018845-0 (Version None)
Quarter: 2010Q3

REPORT INFORMATION
  Report Type: 
  Country: None (occurrence: None)
  Receive Date: 20100928
  Receipt Date: 20100914
  Transmission Date: 20110219
  Serious: Yes (Life-Threatening, Disabling)
  Sender: FDA-Public Use
  Company Number: NL-MYLANLABS-2010S1016853

PATIENT
  Age: 23 Year
  Sex: Female
  Weight: 74 kg

DRUGS (2)
  1. RISPERIDONE [Suspect]
     Indication: PSYCHOTIC DISORDER
     Dosage: 3DD1
     Route: 048
     Dates: start: 20020101
  2. OXAZEPAM [Concomitant]
     Indication: PRODUCT USED FOR UNKNOWN INDICATION
     Dosage: 1-3DD1
     Route: 048
     Dates: start: 20100901

REACTIONS (4)
  - DISSOCIATION [None]
  - DISTURBANCE IN ATTENTION [None]
  - MYALGIA [None]
  - SOMNOLENCE [None]
